FAERS Safety Report 4415968-7 (Version None)
Quarter: 2004Q3

REPORT INFORMATION
  Report Type: 
  Country: None (occurrence: None)
  Receive Date: 20040804
  Receipt Date: 20040804
  Transmission Date: 20050211
  Serious: No
  Sender: FDA-Public Use
  Company Number: None

PATIENT
  Age: 34 Year
  Sex: Female
  Weight: 108.8633 kg

DRUGS (12)
  1. TOPAMAX [Suspect]
     Indication: MIGRAINE
     Dosage: 100MG TWICE DAIL ORAL
     Route: 048
     Dates: start: 20040721, end: 20040722
  2. PAMELOR [Concomitant]
  3. NARDIL [Concomitant]
  4. TOPROL-XL [Concomitant]
  5. LIPITOR [Concomitant]
  6. GLUCOPHAGE [Concomitant]
  7. ACTOS [Concomitant]
  8. LEVOXYL [Concomitant]
  9. MIGRANAL [Concomitant]
  10. TORADOL [Concomitant]
  11. NORFLEX [Concomitant]
  12. BELLERGAL S [Concomitant]

REACTIONS (3)
  - FEELING ABNORMAL [None]
  - IMPAIRED WORK ABILITY [None]
  - MENTAL IMPAIRMENT [None]
